FAERS Safety Report 21839284 (Version 1)
Quarter: 2023Q1

REPORT INFORMATION
  Report Type: Spontaneous
  Country: IN (occurrence: IN)
  Receive Date: 20230109
  Receipt Date: 20230109
  Transmission Date: 20230417
  Serious: Yes (Death, Other)
  Sender: FDA-Public Use
  Company Number: IN-PFIZER INC-2018418982

PATIENT
  Age: 40 Year
  Sex: Female

DRUGS (6)
  1. PALBOCICLIB [Suspect]
     Active Substance: PALBOCICLIB
     Indication: Breast cancer metastatic
     Dosage: 100 MG, 1X/DAY
     Route: 048
     Dates: start: 20170102
  2. PALBOCICLIB [Suspect]
     Active Substance: PALBOCICLIB
     Dosage: 125 MG, ALTERNATE DAY (3 WEEKS ON AND ONE WEEK OFF)
     Route: 048
     Dates: start: 20170105
  3. PALBOCICLIB [Suspect]
     Active Substance: PALBOCICLIB
     Dosage: 100 MG, 1X/DAY
     Route: 048
     Dates: start: 20210615
  4. PALBOCICLIB [Suspect]
     Active Substance: PALBOCICLIB
     Dosage: 100 MG, CYCLIC (ONCE DAILY, 1-0-0, 2 WEEKS ON 1 WEEK OFF)
     Route: 048
     Dates: start: 20210717
  5. PALBOCICLIB [Suspect]
     Active Substance: PALBOCICLIB
     Dosage: 100 MG, CYCLIC (ONCE DAILY, 1-0-0, 3 WEEK ON 1 WEEK OFF)
     Route: 048
     Dates: start: 20210804
  6. FEMARA [Concomitant]
     Active Substance: LETROZOLE
     Dosage: 2.5 MG, 1X/DAY (1-0-0)

REACTIONS (7)
  - Death [Fatal]
  - Vomiting [Unknown]
  - General physical health deterioration [Unknown]
  - Malaise [Unknown]
  - Product dispensing error [Unknown]
  - Incorrect dose administered [Unknown]
  - Off label use [Unknown]
